FAERS Safety Report 11288037 (Version 2)
Quarter: 2015Q3

REPORT INFORMATION
  Report Type: Spontaneous
  Country: US (occurrence: US)
  Receive Date: 20150721
  Receipt Date: 20150723
  Transmission Date: 20151125
  Serious: Yes (Hospitalization)
  Sender: FDA-Public Use
  Company Number: US-ASTRAZENECA-2015SE70034

PATIENT
  Age: 71 Year
  Sex: Female
  Weight: 111.1 kg

DRUGS (15)
  1. LOTREL [Concomitant]
     Active Substance: AMLODIPINE BESYLATE\BENAZEPRIL HYDROCHLORIDE
     Indication: BLOOD PRESSURE ABNORMAL
     Dosage: 5/20 MG, TWO TIMES A DAY
     Route: 048
     Dates: end: 201408
  2. FLOVENT [Concomitant]
     Active Substance: FLUTICASONE PROPIONATE
     Indication: DYSPNOEA
     Route: 055
  3. PROAIR HFA [Concomitant]
     Active Substance: ALBUTEROL SULFATE
     Indication: SUPPLEMENTATION THERAPY
     Route: 055
     Dates: start: 2010
  4. OMEPRAZOLE. [Suspect]
     Active Substance: OMEPRAZOLE
     Indication: FLATULENCE
     Route: 048
     Dates: start: 2010
  5. HYDRALAZINE [Concomitant]
     Active Substance: HYDRALAZINE HYDROCHLORIDE
     Indication: BLOOD PRESSURE ABNORMAL
     Route: 048
     Dates: start: 201408
  6. LASIX [Concomitant]
     Active Substance: FUROSEMIDE
     Indication: DIURETIC THERAPY
     Route: 048
  7. AMLODIPINE BESYLATE. [Concomitant]
     Active Substance: AMLODIPINE BESYLATE
     Indication: BLOOD PRESSURE ABNORMAL
     Route: 048
     Dates: start: 201408
  8. BETA BLOCKER [Suspect]
     Active Substance: UNSPECIFIED INGREDIENT
     Route: 065
  9. UNSPECIFIED MEDICATION [Suspect]
     Active Substance: UNSPECIFIED INGREDIENT
     Route: 065
  10. SENNA [Concomitant]
     Active Substance: SENNA LEAF\SENNOSIDES\SENNOSIDES A AND B
     Indication: CONSTIPATION
     Route: 048
     Dates: start: 201506
  11. BENICAR COMBINED WITH ANOTHER MED UNK NOT SPECIFIED NAME [Concomitant]
     Indication: BLOOD PRESSURE ABNORMAL
     Dosage: 40/25 MG, DAILY
     Route: 048
     Dates: start: 2012, end: 201408
  12. LISINOPRIL. [Suspect]
     Active Substance: LISINOPRIL
     Indication: BLOOD PRESSURE ABNORMAL
     Route: 048
     Dates: start: 201408
  13. OMEPRAZOLE. [Suspect]
     Active Substance: OMEPRAZOLE
     Indication: GASTROOESOPHAGEAL REFLUX DISEASE
     Route: 048
     Dates: start: 2010
  14. LASIX [Concomitant]
     Active Substance: FUROSEMIDE
     Indication: DIURETIC THERAPY
     Route: 048
     Dates: start: 201408
  15. LAXATIVE [Concomitant]
     Active Substance: UNSPECIFIED INGREDIENT
     Indication: CONSTIPATION
     Dosage: DAILY
     Route: 048

REACTIONS (11)
  - Diverticulitis [Unknown]
  - Constipation [Unknown]
  - Pulmonary mass [Unknown]
  - Gastric disorder [Unknown]
  - Gait disturbance [Unknown]
  - Blood pressure abnormal [Unknown]
  - Dyspnoea [Unknown]
  - Gastrooesophageal reflux disease [Unknown]
  - Pain [Unknown]
  - Chronic obstructive pulmonary disease [Unknown]
  - Haemorrhoids [Unknown]

NARRATIVE: CASE EVENT DATE: 2010
